FAERS Safety Report 11616867 (Version 8)
Quarter: 2017Q2

REPORT INFORMATION
  Report Type: Spontaneous
  Country: US (occurrence: US)
  Receive Date: 20151009
  Receipt Date: 20170404
  Transmission Date: 20170829
  Serious: Yes (Other)
  Sender: FDA-Public Use
  Company Number: US-BAYER-2015-435083

PATIENT
  Sex: Female
  Weight: 92.51 kg

DRUGS (34)
  1. CYCLOSPORINE. [Concomitant]
     Active Substance: CYCLOSPORINE
  2. FAMOTIDINE. [Concomitant]
     Active Substance: FAMOTIDINE
     Dosage: 20 MG, UNK
  3. CIPROFLOXACIN. [Suspect]
     Active Substance: CIPROFLOXACIN
     Indication: URINARY TRACT INFECTION
     Dosage: 500 MG, BID
     Route: 048
     Dates: start: 20121004, end: 20121023
  4. CIPROFLOXACIN. [Suspect]
     Active Substance: CIPROFLOXACIN
     Indication: URINARY TRACT INFECTION
     Dosage: 500 MG, UNK
     Route: 048
     Dates: start: 20121023
  5. BACLOFEN. [Concomitant]
     Active Substance: BACLOFEN
     Indication: MUSCLE SPASMS
     Dosage: 10 MG, UNK
     Route: 048
  6. ALPRAZOLAM. [Concomitant]
     Active Substance: ALPRAZOLAM
     Indication: SLEEP DISORDER
     Dosage: 01 MG, UNK
     Route: 048
  7. LYRICA [Concomitant]
     Active Substance: PREGABALIN
     Indication: BURNING SENSATION
     Dosage: 75 MG, UNK
     Route: 048
  8. NAPROXEN. [Concomitant]
     Active Substance: NAPROXEN
     Dosage: UNK
  9. AVELOX [Suspect]
     Active Substance: MOXIFLOXACIN HYDROCHLORIDE
     Indication: DYSPNOEA
     Dosage: 400 MG, QD
     Dates: start: 20101220, end: 20101224
  10. AVELOX [Suspect]
     Active Substance: MOXIFLOXACIN HYDROCHLORIDE
     Indication: DYSPNOEA
     Dosage: UNK
     Route: 048
     Dates: start: 20101224, end: 20110101
  11. AVELOX [Suspect]
     Active Substance: MOXIFLOXACIN HYDROCHLORIDE
     Indication: DYSPNOEA
     Dosage: UNK
     Dates: start: 20110101
  12. IBUPROFEN. [Concomitant]
     Active Substance: IBUPROFEN
     Indication: PAIN
     Dosage: 200 MG, UNK
     Route: 048
  13. GABAPENTIN. [Concomitant]
     Active Substance: GABAPENTIN
     Dosage: UNK
  14. ACETAMINOPHEN. [Concomitant]
     Active Substance: ACETAMINOPHEN
     Dosage: 7.5-500 MG TABS
  15. PEPCID [Concomitant]
     Active Substance: FAMOTIDINE
  16. LYRICA [Concomitant]
     Active Substance: PREGABALIN
     Indication: PARAESTHESIA
  17. METHOTREXATE. [Concomitant]
     Active Substance: METHOTREXATE
     Dosage: UNK
  18. ROPINIROLE. [Concomitant]
     Active Substance: ROPINIROLE
     Dosage: UNK
  19. HYDROCODONE [Concomitant]
     Active Substance: HYDROCODONE
     Dosage: UNK
  20. PLAQUENIL [Concomitant]
     Active Substance: HYDROXYCHLOROQUINE SULFATE
     Dosage: UNK
  21. GLIBENCLAMIDE [Concomitant]
     Active Substance: GLYBURIDE
     Dosage: UNK
  22. LEVOTHYROXINE. [Concomitant]
     Active Substance: LEVOTHYROXINE
     Indication: THYROID THERAPY
     Dosage: 0.025 MG, UNK
     Route: 048
  23. IBUPROFEN. [Concomitant]
     Active Substance: IBUPROFEN
     Indication: PAIN
     Dosage: 800 MG, UNK
  24. MOTRIN [Concomitant]
     Active Substance: IBUPROFEN
     Dosage: UNK
  25. THEOPHYLLINE [Concomitant]
     Active Substance: THEOPHYLLINE ANHYDROUS
     Dosage: UNK
  26. TIZANIDINE. [Concomitant]
     Active Substance: TIZANIDINE
     Dosage: UNK
  27. WARFARIN [Concomitant]
     Active Substance: WARFARIN
     Dosage: UNK
  28. NEURONTIN [Concomitant]
     Active Substance: GABAPENTIN
     Dosage: 300 MG, UNK
  29. METOCLOPRAMIDE. [Concomitant]
     Active Substance: METOCLOPRAMIDE
     Dosage: UNK
  30. AVELOX [Suspect]
     Active Substance: MOXIFLOXACIN HYDROCHLORIDE
     Indication: LUNG ABSCESS
     Dosage: 400 MG, UNK
     Route: 048
     Dates: start: 20101224, end: 20101231
  31. DULOXETINE. [Concomitant]
     Active Substance: DULOXETINE
     Dosage: UNK
  32. OMEPRAZOLE. [Concomitant]
     Active Substance: OMEPRAZOLE
     Dosage: UNK
  33. VICODIN [Concomitant]
     Active Substance: ACETAMINOPHEN\HYDROCODONE BITARTRATE
     Indication: PAIN
     Dosage: UNK
     Route: 048
  34. LEVAQUIN [Concomitant]
     Active Substance: LEVOFLOXACIN
     Dosage: 500 MG, UNK

REACTIONS (36)
  - Muscle spasms [None]
  - Secondary hypogonadism [None]
  - Headache [None]
  - Ligament sprain [None]
  - Hypothalamo-pituitary disorder [None]
  - Sleep disorder due to a general medical condition [None]
  - Constipation [None]
  - Tibia fracture [None]
  - Myopathy [None]
  - Hypoaesthesia [None]
  - Muscular weakness [None]
  - Oedema [None]
  - Sleep apnoea syndrome [None]
  - Injury [None]
  - Hypoxia [None]
  - Autonomic neuropathy [None]
  - Arthralgia [None]
  - Fibula fracture [None]
  - Emotional distress [None]
  - Ataxia [None]
  - Musculoskeletal stiffness [None]
  - Eye pain [None]
  - Neuropathy peripheral [None]
  - Anxiety [None]
  - Burning sensation [None]
  - Joint swelling [None]
  - Asthenia [None]
  - Fungal skin infection [None]
  - Pain [None]
  - Stress [None]
  - Pain in extremity [None]
  - Night sweats [None]
  - Insomnia [None]
  - Back pain [None]
  - Dyspepsia [None]
  - Eye irritation [None]
